FAERS Safety Report 7552146-7 (Version None)
Quarter: 2011Q2

REPORT INFORMATION
  Report Type: 
  Country: None (occurrence: None)
  Receive Date: 20110616
  Receipt Date: 20110610
  Transmission Date: 20111010
  Serious: Yes (Death, Life-Threatening, Other)
  Sender: FDA-Public Use
  Company Number: PHHY2011JP47949

PATIENT
  Age: 10 Year
  Sex: Male

DRUGS (7)
  1. CYCLOSPORINE [Suspect]
     Dosage: 2MG/KG
     Route: 048
  2. ANTIBIOTICS [Concomitant]
  3. MINOCYCLINE HCL [Concomitant]
  4. CYCLOPHOSPHAMIDE [Concomitant]
  5. SANDIMMUNE [Suspect]
     Dosage: UNK UKN, UNK
     Route: 041
  6. POLYGAM S/D [Concomitant]
     Dosage: 1 G/KG, DAILY
  7. PREDNISOLONE [Concomitant]
     Dosage: 1 MG/KG,DAILY

REACTIONS (21)
  - ATELECTASIS [None]
  - FLUSHING [None]
  - INTERSTITIAL LUNG DISEASE [None]
  - CREPITATIONS [None]
  - RESPIRATORY FAILURE [None]
  - BREATH SOUNDS ABNORMAL [None]
  - DYSPNOEA [None]
  - COUGH [None]
  - OXYGEN CONSUMPTION INCREASED [None]
  - MUSCLE ATROPHY [None]
  - DRUG INEFFECTIVE [None]
  - HYPOXIA [None]
  - PALLOR [None]
  - LIP DRY [None]
  - T-LYMPHOCYTE COUNT DECREASED [None]
  - WEIGHT DECREASED [None]
  - MUSCULAR WEAKNESS [None]
  - ACUTE RESPIRATORY DISTRESS SYNDROME [None]
  - SALIVARY HYPERSECRETION [None]
  - DYSPHAGIA [None]
  - DYSPHONIA [None]
